FAERS Safety Report 14604578 (Version 4)
Quarter: 2018Q2

REPORT INFORMATION
  Report Type: Spontaneous
  Country: IT (occurrence: IT)
  Receive Date: 20180306
  Receipt Date: 20180405
  Transmission Date: 20180711
  Serious: Yes (Hospitalization, Other)
  Sender: FDA-Public Use
  Company Number: IT-ASTRAZENECA-2018SE24807

PATIENT
  Age: 33 Year
  Sex: Female

DRUGS (7)
  1. ALCOHOL. [Interacting]
     Active Substance: ALCOHOL
     Indication: PRODUCT USED FOR UNKNOWN INDICATION
     Route: 065
  2. CARBOLITHIUM [Suspect]
     Active Substance: LITHIUM CARBONATE
     Indication: PRODUCT USED FOR UNKNOWN INDICATION
     Dosage: 1500.0MG ONCE/SINGLE ADMINISTRATION
     Route: 048
  3. FLUOXETINE [Suspect]
     Active Substance: FLUOXETINE HYDROCHLORIDE
     Indication: PRODUCT USED FOR UNKNOWN INDICATION
     Route: 048
  4. TACHIDOL [Suspect]
     Active Substance: ACETAMINOPHEN\CODEINE PHOSPHATE
     Indication: PRODUCT USED FOR UNKNOWN INDICATION
     Route: 048
     Dates: start: 201707
  5. LORAZEPAM. [Suspect]
     Active Substance: LORAZEPAM
     Indication: PRODUCT USED FOR UNKNOWN INDICATION
     Route: 048
  6. AUGMENTIN [Suspect]
     Active Substance: AMOXICILLIN\CLAVULANATE POTASSIUM
     Indication: PRODUCT USED FOR UNKNOWN INDICATION
     Route: 048
     Dates: start: 201707
  7. QUETIAPINE. [Suspect]
     Active Substance: QUETIAPINE
     Indication: PRODUCT USED FOR UNKNOWN INDICATION
     Dosage: 1500.0MG ONCE/SINGLE ADMINISTRATION
     Route: 048

REACTIONS (10)
  - Overdose [Unknown]
  - Leukocytosis [Recovering/Resolving]
  - Drug use disorder [Recovering/Resolving]
  - Protein C increased [Recovering/Resolving]
  - Pyrexia [Recovering/Resolving]
  - Pelvic pain [Recovering/Resolving]
  - Drug abuse [Unknown]
  - Alcohol interaction [Recovering/Resolving]
  - Exposure during pregnancy [Unknown]
  - Induced abortion failed [Recovering/Resolving]

NARRATIVE: CASE EVENT DATE: 2017
